FAERS Safety Report 20709419 (Version 1)
Quarter: 2022Q2

REPORT INFORMATION
  Report Type: Spontaneous
  Country: US (occurrence: US)
  Receive Date: 20220414
  Receipt Date: 20220414
  Transmission Date: 20220721
  Serious: Yes (Other)
  Sender: FDA-Public Use
  Company Number: US-JNJFOC-20220409309

PATIENT
  Age: 60 Year
  Sex: Male

DRUGS (6)
  1. SPRAVATO [Suspect]
     Active Substance: ESKETAMINE
     Indication: Depression
     Dosage: 56 MG, 54 TOTAL DOSES.
     Dates: start: 20191029, end: 20201201
  2. SPRAVATO [Suspect]
     Active Substance: ESKETAMINE
     Indication: Suicidal ideation
     Dosage: 84 MG, 25 TOTAL DOSES
     Dates: start: 20201211, end: 20220322
  3. SPRAVATO [Suspect]
     Active Substance: ESKETAMINE
     Dosage: 84 MG, 1 TOTAL DOSE
     Dates: start: 20220329, end: 20220329
  4. KLONOPIN [Concomitant]
     Active Substance: CLONAZEPAM
  5. RESTORIL [Concomitant]
     Active Substance: TEMAZEPAM
     Dosage: 1 (HOUR OF SLEEP )
  6. RITALIN [Concomitant]
     Active Substance: METHYLPHENIDATE HYDROCHLORIDE

REACTIONS (7)
  - Unresponsive to stimuli [Unknown]
  - Hypopnoea [Unknown]
  - Treatment noncompliance [Unknown]
  - Miosis [Unknown]
  - Hypotension [Unknown]
  - Weight decreased [Unknown]
  - Hypersomnia [Unknown]
